FAERS Safety Report 8373341 (Version 2)
Quarter: 2013Q1

REPORT INFORMATION
  Report Type: Report from Study
  Country: US (occurrence: US)
  Receive Date: 20120128
  Receipt Date: 20130115
  Transmission Date: 20140127
  Serious: Yes (Other)
  Sender: FDA-Public Use
  Company Number: US-ABBOTT-11P-163-0844215-00

PATIENT
  Age: 74 Year
  Sex: Male

DRUGS (11)
  1. HUMIRA 40 MG/0.8 ML PEN [Suspect]
     Indication: CROHN^S DISEASE
     Dates: start: 20110615, end: 20120920
  2. HUMIRA 40 MG/0.8 ML PEN [Suspect]
     Dates: start: 20130110
  3. TOPROL [Concomitant]
     Indication: HYPERTENSION
     Dosage: DAILY
  4. CADUET [Concomitant]
     Indication: HYPERTENSION
     Dosage: 5/20MG DAILY
  5. ASA [Concomitant]
     Indication: PRODUCT USED FOR UNKNOWN INDICATION
     Dosage: DAILY
  6. TRICOR [Concomitant]
     Indication: BLOOD CHOLESTEROL INCREASED
     Dosage: DAILY
  7. PRILOSEC [Concomitant]
     Indication: GASTROOESOPHAGEAL REFLUX DISEASE
     Dosage: DAILY
  8. ACTOS [Concomitant]
     Indication: TYPE 2 DIABETES MELLITUS
     Dosage: DAILY
  9. AMARYL [Concomitant]
     Indication: TYPE 2 DIABETES MELLITUS
     Dosage: DAILY
  10. RESTASIS [Concomitant]
     Indication: DRY EYE
     Dosage: 1 GTT IN RIGHT EYE, TWICE DAILY
  11. CYMBALTA [Concomitant]
     Indication: DEPRESSION
     Dosage: DAILY

REACTIONS (3)
  - Abasia [Recovering/Resolving]
  - Back pain [Recovering/Resolving]
  - Injection site reaction [Recovering/Resolving]
